FAERS Safety Report 11037121 (Version 1)
Quarter: 2015Q2

REPORT INFORMATION
  Report Type: Spontaneous
  Country: US (occurrence: US)
  Receive Date: 20150416
  Receipt Date: 20150416
  Transmission Date: 20150821
  Serious: No
  Sender: FDA-Public Use
  Company Number: US-BIOGENIDEC-2015BI046598

PATIENT
  Age: 49 Year
  Sex: Female

DRUGS (1)
  1. TECFIDERA [Suspect]
     Active Substance: DIMETHYL FUMARATE
     Indication: MULTIPLE SCLEROSIS
     Route: 048
     Dates: start: 20150301

REACTIONS (4)
  - Peripheral coldness [Not Recovered/Not Resolved]
  - Flushing [Recovered/Resolved]
  - Pain [Recovered/Resolved]
  - Crying [Recovered/Resolved]

NARRATIVE: CASE EVENT DATE: 2015
